FAERS Safety Report 9651510 (Version 3)
Quarter: 2013Q4

REPORT INFORMATION
  Report Type: Spontaneous
  Country: US (occurrence: US)
  Receive Date: 20131029
  Receipt Date: 20131125
  Transmission Date: 20140711
  Serious: Yes (Death, Disabling)
  Sender: FDA-Public Use
  Company Number: US-CELGENEUS-163-20785-13100160

PATIENT
  Sex: Female

DRUGS (9)
  1. THALOMID [Suspect]
     Indication: ALPHA 1 FOETOPROTEIN INCREASED
     Dosage: 200 MILLIGRAM
     Route: 048
     Dates: start: 200905
  2. THALOMID [Suspect]
     Dosage: 100-200 MG
     Route: 048
     Dates: start: 200906
  3. THALOMID [Suspect]
     Dosage: 100-200 MG
     Route: 048
     Dates: start: 201105
  4. THALOMID [Suspect]
     Dosage: 100 MILLIGRAM
     Route: 048
     Dates: start: 20130917, end: 2013
  5. PRO-STAT [Concomitant]
     Indication: PRODUCT USED FOR UNKNOWN INDICATION
     Route: 065
  6. PERCOCET [Concomitant]
     Indication: PRODUCT USED FOR UNKNOWN INDICATION
     Route: 065
  7. CONSTULOSE [Concomitant]
     Indication: PRODUCT USED FOR UNKNOWN INDICATION
     Route: 065
  8. ASA [Concomitant]
     Indication: PERIPHERAL VASCULAR DISORDER
     Route: 065
  9. PLAVIX [Concomitant]
     Indication: PERIPHERAL VASCULAR DISORDER
     Route: 065

REACTIONS (1)
  - Neoplasm progression [Fatal]
